FAERS Safety Report 6745537-5 (Version None)
Quarter: 2010Q2

REPORT INFORMATION
  Report Type: 
  Country: None (occurrence: None)
  Receive Date: 20100528
  Receipt Date: 20100519
  Transmission Date: 20101027
  Serious: No
  Sender: FDA-Public Use
  Company Number: US-JNJFOC-20100508633

PATIENT
  Sex: Female
  Weight: 120.2 kg

DRUGS (2)
  1. FENTANYL CITRATE [Suspect]
     Indication: PAIN
     Route: 062
  2. OTHER THERAPEUTIC MEDICATION [Concomitant]
     Indication: DRUG USE FOR UNKNOWN INDICATION
     Route: 065

REACTIONS (8)
  - EATING DISORDER [None]
  - FATIGUE [None]
  - MALAISE [None]
  - NAUSEA [None]
  - PRODUCT ADHESION ISSUE [None]
  - SOMNOLENCE [None]
  - TREATMENT NONCOMPLIANCE [None]
  - WRONG TECHNIQUE IN DRUG USAGE PROCESS [None]
